FAERS Safety Report 10311044 (Version 2)
Quarter: 2014Q3

REPORT INFORMATION
  Report Type: Spontaneous
  Country: GB (occurrence: None)
  Receive Date: 20140715
  Receipt Date: 20140729
  Transmission Date: 20150326
  Serious: Yes (Other)
  Sender: FDA-Public Use
  Company Number: AUR-APL-2014-07377

PATIENT
  Sex: Male

DRUGS (2)
  1. METFORMIN (METFORMIN) UNKNOWN, UNKNOWN [Suspect]
     Active Substance: METFORMIN HYDROCHLORIDE
     Indication: DIABETES MELLITUS
     Dosage: UNKNOWN
  2. RAMIPRIL (RAMIPRIL) UNKNOWN, UNKNOWN [Suspect]
     Active Substance: RAMIPRIL
     Indication: HYPERTENSION
     Dosage: UNKNOWN

REACTIONS (3)
  - Blood glucose increased [None]
  - Drug dose omission [None]
  - Hypotension [None]

NARRATIVE: CASE EVENT DATE: 20140630
